FAERS Safety Report 11219660 (Version 2)
Quarter: 2015Q2

REPORT INFORMATION
  Report Type: Spontaneous
  Country: US (occurrence: US)
  Receive Date: 20150625
  Receipt Date: 20150630
  Transmission Date: 20150821
  Serious: Yes (Other)
  Sender: FDA-Public Use
  Company Number: US-UNITED THERAPEUTICS-UNT-2015-007486

PATIENT
  Age: 25 Year
  Sex: Female
  Weight: 48.98 kg

DRUGS (4)
  1. ADCIRCA [Concomitant]
     Active Substance: TADALAFIL
     Indication: PRODUCT USED FOR UNKNOWN INDICATION
  2. REMODULIN [Suspect]
     Active Substance: TREPROSTINIL
     Dosage: 0.129 ?G/KG, CONTINUING
     Route: 041
     Dates: start: 20140401
  3. REMODULIN [Suspect]
     Active Substance: TREPROSTINIL
     Indication: PULMONARY HYPERTENSION
     Dosage: 0.129 ?G/KG, CONTINUING
     Route: 041
     Dates: start: 20050830
  4. LETAIRIS [Concomitant]
     Active Substance: AMBRISENTAN
     Indication: PRODUCT USED FOR UNKNOWN INDICATION

REACTIONS (9)
  - Oxygen saturation decreased [Unknown]
  - Cyanosis [Unknown]
  - Asthenia [Unknown]
  - Headache [Unknown]
  - Malaise [Unknown]
  - Flushing [Unknown]
  - Accidental overdose [Unknown]
  - Device issue [Unknown]
  - Pallor [Unknown]

NARRATIVE: CASE EVENT DATE: 2015
